FAERS Safety Report 5874210-0 (Version None)
Quarter: 2008Q3

REPORT INFORMATION
  Report Type: 
  Country: None (occurrence: None)
  Receive Date: 20080908
  Receipt Date: 20080828
  Transmission Date: 20090109
  Serious: Yes (Other)
  Sender: FDA-Public Use
  Company Number: US-JNJFOC-20080900037

PATIENT
  Age: 8 Decade
  Sex: Female

DRUGS (2)
  1. DORIBAX [Suspect]
     Indication: PYELONEPHRITIS
     Route: 041
  2. DORIBAX [Suspect]
     Indication: URINARY TRACT INFECTION
     Route: 041

REACTIONS (1)
  - CONVULSION [None]
